FAERS Safety Report 6227473-6 (Version None)
Quarter: 2009Q2

REPORT INFORMATION
  Report Type: 
  Country: None (occurrence: None)
  Receive Date: 20090612
  Receipt Date: 20090602
  Transmission Date: 20091009
  Serious: Yes (Other)
  Sender: FDA-Public Use
  Company Number: PHHY2009JP21385

PATIENT
  Age: 57 Year
  Sex: Male

DRUGS (1)
  1. AREDIA [Suspect]
     Indication: MULTIPLE MYELOMA

REACTIONS (4)
  - BONE DISORDER [None]
  - JAW OPERATION [None]
  - OSTEONECROSIS [None]
  - PAIN IN JAW [None]
